FAERS Safety Report 21911863 (Version 1)
Quarter: 2023Q1

REPORT INFORMATION
  Report Type: Report from Study
  Country: AR (occurrence: AR)
  Receive Date: 20230125
  Receipt Date: 20230125
  Transmission Date: 20230418
  Serious: Yes (Other)
  Sender: FDA-Public Use
  Company Number: AR-002147023-NVSC2023AR013836

PATIENT
  Sex: Male

DRUGS (2)
  1. COSENTYX [Suspect]
     Active Substance: SECUKINUMAB
     Indication: Axial spondyloarthritis
     Dosage: 150 MG, QMO
     Route: 058
     Dates: start: 20210824
  2. COSENTYX [Suspect]
     Active Substance: SECUKINUMAB
     Dosage: UNK (LAST APPLICATION WAS A MONTH AND A HALF AGO)
     Route: 065

REACTIONS (1)
  - Throat cancer [Unknown]
